FAERS Safety Report 16378732 (Version 1)
Quarter: 2019Q2

REPORT INFORMATION
  Report Type: Spontaneous
  Country: US (occurrence: US)
  Receive Date: 20190416
  Receipt Date: 20190416
  Transmission Date: 20190711
  Serious: Yes (Hospitalization)
  Sender: FDA-Public Use
  Company Number: None

PATIENT
  Sex: Male

DRUGS (10)
  1. SILDENAFIL. [Suspect]
     Active Substance: SILDENAFIL
     Indication: PULMONARY HYPERTENSION
  2. MEMANTINE 10MG TABLETS [Concomitant]
     Dates: start: 20180125
  3. MONTELUKAST 10MB TABLETS [Concomitant]
     Dates: start: 20190125
  4. MIRTAZAPINE TABLETS 15MG [Concomitant]
     Dates: start: 20190329
  5. XARELTO [Concomitant]
     Active Substance: RIVAROXABAN
     Dates: start: 20181205
  6. CARVEDILOL 3.125MG TABLETS [Concomitant]
     Dates: start: 20190213
  7. DONEPEZIL 10MG TABLETS [Concomitant]
     Dates: start: 20190126
  8. SPIRONOLACTONE 25MG TABLETS [Concomitant]
     Dates: start: 20180416
  9. CANDESARTAN TABLETS 4MG [Concomitant]
     Dates: start: 20190221
  10. FUROSEMIDE 20MG TABLETS [Concomitant]
     Active Substance: FUROSEMIDE
     Dates: start: 20180731

REACTIONS (1)
  - Hip fracture [None]
